FAERS Safety Report 5474820-9 (Version None)
Quarter: 2007Q3

REPORT INFORMATION
  Report Type: 
  Country: None (occurrence: None)
  Receive Date: 20070928
  Receipt Date: 20070920
  Transmission Date: 20080115
  Serious: Yes (Hospitalization)
  Sender: FDA-Public Use
  Company Number: 2007SP019109

PATIENT
  Age: 48 Year
  Sex: Male

DRUGS (2)
  1. PEG-INTRON [Suspect]
     Indication: HEPATITIS C
     Dosage: 100 MCG; QW; SC
     Route: 058
     Dates: start: 20070116
  2. REBETOL [Suspect]
     Indication: HEPATITIS C
     Dosage: 800 MG; QD; PO
     Route: 048
     Dates: start: 20070116

REACTIONS (1)
  - RUPTURED CEREBRAL ANEURYSM [None]
